FAERS Safety Report 8782646 (Version 7)
Quarter: 2013Q4

REPORT INFORMATION
  Report Type: Spontaneous
  Country: US (occurrence: US)
  Receive Date: 20120913
  Receipt Date: 20131111
  Transmission Date: 20140711
  Serious: Yes (Hospitalization, Other)
  Sender: FDA-Public Use
  Company Number: US-009507513-2012SP028679

PATIENT
  Sex: Female
  Weight: 49.43 kg

DRUGS (2)
  1. NUVARING [Suspect]
     Indication: CONTRACEPTION
     Dosage: UNK UNK, QM
     Route: 067
     Dates: start: 201011, end: 201012
  2. NUVARING [Suspect]
     Indication: OVARIAN CYST
     Dosage: UNK
     Route: 067
     Dates: start: 201102, end: 20110319

REACTIONS (33)
  - Venous stent insertion [Unknown]
  - Pulmonary embolism [Unknown]
  - Vena cava filter insertion [Unknown]
  - Thrombectomy [Unknown]
  - Deep vein thrombosis [Not Recovered/Not Resolved]
  - Swelling face [Recovered/Resolved]
  - Urinary tract infection [Unknown]
  - Abdominal distension [Recovered/Resolved]
  - Varicose vein [Unknown]
  - Anaemia [Unknown]
  - Abscess [Unknown]
  - Diarrhoea [Recovered/Resolved]
  - Leukocytosis [Unknown]
  - Decreased appetite [Unknown]
  - Nausea [Unknown]
  - Weight decreased [Unknown]
  - Helicobacter infection [Unknown]
  - Venous stenosis [Unknown]
  - Thrombectomy [Unknown]
  - Nephrolithiasis [Recovered/Resolved]
  - Syncope [Unknown]
  - Surgical failure [Unknown]
  - Gastrooesophageal reflux disease [Unknown]
  - Dyspnoea [Recovered/Resolved]
  - Lymphadenopathy [Unknown]
  - Hypoaesthesia [Unknown]
  - Adjustment disorder [Unknown]
  - Dysmenorrhoea [Unknown]
  - Post thrombotic syndrome [Not Recovered/Not Resolved]
  - Musculoskeletal chest pain [Unknown]
  - Deep vein thrombosis [Unknown]
  - Deep vein thrombosis [Unknown]
  - Pulmonary embolism [Unknown]
